FAERS Safety Report 7020748-2 (Version None)
Quarter: 2010Q3

REPORT INFORMATION
  Report Type: 
  Country: None (occurrence: None)
  Receive Date: 20100927
  Receipt Date: 20100917
  Transmission Date: 20110219
  Serious: Yes (Other)
  Sender: FDA-Public Use
  Company Number: 2010SP043522

PATIENT
  Sex: Male

DRUGS (6)
  1. REMERON [Suspect]
     Indication: DEPRESSION
     Dosage: 15 MG; QD; PO
     Route: 048
     Dates: start: 20100729, end: 20100807
  2. AMOXAN (CON.) [Concomitant]
  3. HALCION (PREV.) [Concomitant]
  4. HALCION (CON.) [Concomitant]
  5. SULPIRIDE (PREV.) [Concomitant]
  6. ROHYPNOL (PREV.) [Concomitant]

REACTIONS (5)
  - ASPARTATE AMINOTRANSFERASE INCREASED [None]
  - BLOOD CREATINE PHOSPHOKINASE INCREASED [None]
  - BODY TEMPERATURE INCREASED [None]
  - GRAND MAL CONVULSION [None]
  - MUSCLE FATIGUE [None]
